FAERS Safety Report 9433701 (Version 2)
Quarter: 2013Q4

REPORT INFORMATION
  Report Type: Spontaneous
  Country: IT (occurrence: IT)
  Receive Date: 20130731
  Receipt Date: 20131030
  Transmission Date: 20140711
  Serious: Yes (Other)
  Sender: FDA-Public Use
  Company Number: IT-ROCHE-1254957

PATIENT
  Age: 62 Year
  Sex: Female
  Weight: 51 kg

DRUGS (7)
  1. MABTHERA [Suspect]
     Indication: B-CELL LYMPHOMA
     Route: 042
     Dates: start: 20130305, end: 20130424
  2. VINCRISTINA [Suspect]
     Indication: B-CELL LYMPHOMA
     Route: 040
     Dates: start: 20130305, end: 20130424
  3. ENDOXAN BAXTER [Suspect]
     Indication: B-CELL LYMPHOMA
     Route: 042
     Dates: start: 20130305, end: 20130424
  4. ADRIBLASTINA [Suspect]
     Indication: B-CELL LYMPHOMA
     Route: 042
     Dates: start: 20130305, end: 20130424
  5. RANIDIL [Concomitant]
     Route: 042
     Dates: start: 20130305, end: 20130424
  6. SOLDESAM [Concomitant]
     Route: 042
     Dates: start: 20130305, end: 20130424
  7. ONDANSETRON HIKMA [Concomitant]
     Route: 042
     Dates: start: 20130305, end: 20130424

REACTIONS (5)
  - Asthenia [Unknown]
  - Dysphonia [Unknown]
  - Formication [Unknown]
  - Nausea [Unknown]
  - Retching [Unknown]
